FAERS Safety Report 7407061-6 (Version None)
Quarter: 2011Q2

REPORT INFORMATION
  Report Type: 
  Country: None (occurrence: None)
  Receive Date: 20110411
  Receipt Date: 20110331
  Transmission Date: 20111010
  Serious: No
  Sender: FDA-Public Use
  Company Number: EC-ROCHE-768731

PATIENT
  Sex: Female
  Weight: 59 kg

DRUGS (1)
  1. ROACCUTAN [Suspect]
     Indication: ACNE CONGLOBATA
     Route: 048
     Dates: start: 20101121, end: 20110325

REACTIONS (1)
  - ABORTION INDUCED [None]
